FAERS Safety Report 5356536-2 (Version None)
Quarter: 2007Q2

REPORT INFORMATION
  Report Type: 
  Country: None (occurrence: None)
  Receive Date: 20070530
  Receipt Date: 20061214
  Transmission Date: 20071010
  Serious: Yes (Hospitalization)
  Sender: FDA-Public Use
  Company Number: US200608006822

PATIENT
  Age: 15 Year
  Sex: Female
  Weight: 49.9 kg

DRUGS (1)
  1. ZYPREXA [Suspect]
     Dosage: 2/D
     Dates: start: 20020502, end: 20020923

REACTIONS (6)
  - DIABETES MELLITUS [None]
  - EMOTIONAL DISTRESS [None]
  - GASTRIC DISORDER [None]
  - GASTROINTESTINAL DISORDER [None]
  - HYPERGLYCAEMIA [None]
  - PAIN [None]
